FAERS Safety Report 7130384-5 (Version None)
Quarter: 2010Q4

REPORT INFORMATION
  Report Type: 
  Country: None (occurrence: None)
  Receive Date: 20101201
  Receipt Date: 20101118
  Transmission Date: 20110411
  Serious: Yes (Other)
  Sender: FDA-Public Use
  Company Number: US-ELI_LILLY_AND_COMPANY-US201007005846

PATIENT
  Sex: Female

DRUGS (18)
  1. FORTEO [Suspect]
     Indication: OSTEOPOROSIS
     Dosage: 20 UG, DAILY (1/D)
     Dates: start: 20100505
  2. FORTEO [Suspect]
     Dosage: 20 UG, DAILY (1/D)
  3. FORTEO [Suspect]
     Dosage: 20 UG, DAILY (1/D)
  4. FORTEO [Suspect]
     Dosage: 20 UG, DAILY (1/D)
  5. EFFEXOR XR [Concomitant]
     Dosage: 200 MG, 3/D
  6. WELLBUTRIN [Concomitant]
     Dosage: 150 MG, 3/D
  7. HYDROCODONE [Concomitant]
     Dosage: UNK, AS NEEDED
  8. FLEXERIL [Concomitant]
     Dosage: UNK, 3/D
  9. XANAX [Concomitant]
     Dosage: UNK, AS NEEDED
  10. NEURONTIN [Concomitant]
     Dosage: 500 MG, 4/D
  11. LUNESTA [Concomitant]
  12. VITAMIN D [Concomitant]
  13. GABAPENTIN [Concomitant]
     Dosage: 800 MG, 4/D
     Route: 065
  14. PRAVASTATIN [Concomitant]
     Dosage: 40 MG, UNKNOWN
     Route: 065
  15. EFFEXOR [Concomitant]
     Dosage: 150 MG, EACH MORNING (3 AT ONES)
     Route: 065
  16. WELLBUTRIN XL [Concomitant]
     Dosage: 10/650MG, UNKNOWN
     Route: 065
  17. NEXIUM [Concomitant]
     Dosage: 40 MG, DAILY (1/D)
     Route: 065
  18. VOLTAREN                                /SCH/ [Concomitant]
     Dosage: UNK, UNKNOWN
     Route: 065

REACTIONS (19)
  - ACNE [None]
  - ALOPECIA [None]
  - ALTERED STATE OF CONSCIOUSNESS [None]
  - ARTHRALGIA [None]
  - BONE DISORDER [None]
  - BONE FORMATION INCREASED [None]
  - BREAST MASS [None]
  - CONTUSION [None]
  - FALL [None]
  - FATIGUE [None]
  - FIBROMYALGIA [None]
  - ITCHING SCAR [None]
  - MEMORY IMPAIRMENT [None]
  - PAIN [None]
  - SKIN SWELLING [None]
  - STRESS [None]
  - TRANSIENT ISCHAEMIC ATTACK [None]
  - TREMOR [None]
  - VIITH NERVE PARALYSIS [None]
